FAERS Safety Report 4550450-8 (Version None)
Quarter: 2004Q4

REPORT INFORMATION
  Report Type: 
  Country: None (occurrence: None)
  Receive Date: 20041227
  Receipt Date: 20041129
  Transmission Date: 20050328
  Serious: No
  Sender: FDA-Public Use
  Company Number: 04P-163-0281555-00

PATIENT
  Age: 20 Year
  Sex: Female

DRUGS (1)
  1. HUMIRA [Suspect]
     Indication: CROHN'S DISEASE
     Dosage: 80 MG, ONCE, SUBCUTANEOUS
     Route: 058
     Dates: start: 20041015, end: 20041015

REACTIONS (1)
  - INJECTION SITE URTICARIA [None]
